FAERS Safety Report 8385894-X (Version None)
Quarter: 2012Q2

REPORT INFORMATION
  Report Type: 
  Country: None (occurrence: None)
  Receive Date: 20120525
  Receipt Date: 20120516
  Transmission Date: 20120825
  Serious: Yes (Other)
  Sender: FDA-Public Use
  Company Number: BR-US-EMD SERONO, INC.-7111540

PATIENT
  Sex: Female

DRUGS (9)
  1. FOLIC ACID [Concomitant]
     Indication: PRODUCT USED FOR UNKNOWN INDICATION
  2. PRELONE [Concomitant]
     Indication: PRODUCT USED FOR UNKNOWN INDICATION
  3. MANTIDAN [Concomitant]
     Indication: PRODUCT USED FOR UNKNOWN INDICATION
  4. REBIF [Suspect]
     Indication: RELAPSING-REMITTING MULTIPLE SCLEROSIS
     Dates: start: 20100915
  5. METHOTREXATE [Concomitant]
     Indication: PRODUCT USED FOR UNKNOWN INDICATION
  6. NORIPURUM [Concomitant]
     Indication: PRODUCT USED FOR UNKNOWN INDICATION
  7. MELACOX (MELOXICAM) [Concomitant]
     Indication: PRODUCT USED FOR UNKNOWN INDICATION
  8. REBIF [Suspect]
     Dates: start: 20101107
  9. ACETAMINOPHEN [Concomitant]
     Indication: PRODUCT USED FOR UNKNOWN INDICATION

REACTIONS (5)
  - KERATITIS [None]
  - MALAISE [None]
  - RHINITIS [None]
  - BALANCE DISORDER [None]
  - MEMORY IMPAIRMENT [None]
